FAERS Safety Report 8964962 (Version 1)
Quarter: 2012Q4

REPORT INFORMATION
  Report Type: 
  Country: GB (occurrence: GB)
  Receive Date: 20121214
  Receipt Date: 20121214
  Transmission Date: 20130627
  Serious: Yes (Other)
  Sender: FDA-Public Use
  Company Number: GB-ROCHE-1168558

PATIENT
  Age: 57 Year
  Sex: Male

DRUGS (2)
  1. LUCENTIS [Suspect]
     Indication: PRODUCT USED FOR UNKNOWN INDICATION
     Route: 050
     Dates: start: 201202
  2. INSULIN [Concomitant]

REACTIONS (2)
  - Corneal epithelium defect [Unknown]
  - Cystoid macular oedema [Unknown]
